FAERS Safety Report 8287115-5 (Version None)
Quarter: 2012Q2

REPORT INFORMATION
  Report Type: 
  Country: None (occurrence: None)
  Receive Date: 20120416
  Receipt Date: 20120410
  Transmission Date: 20120825
  Serious: Yes (Hospitalization)
  Sender: FDA-Public Use
  Company Number: JP-BAYER-2011-050273

PATIENT
  Age: 67 Year
  Sex: Male
  Weight: 53 kg

DRUGS (6)
  1. NEXAVAR [Suspect]
     Indication: HEPATIC NEOPLASM MALIGNANT
     Dosage: DAILY DOSE 400 MG
     Route: 048
     Dates: start: 20110301, end: 20110607
  2. NEXAVAR [Suspect]
     Dosage: DAILY DOSE 400 MG
     Route: 048
     Dates: start: 20120223, end: 20120404
  3. URSO 250 [Concomitant]
     Indication: HEPATITIS C
     Dosage: DAILY DOSE 100 MG
     Route: 048
  4. MIRIPLA [Concomitant]
     Dosage: DAILY DOSE 70 MG
     Route: 042
     Dates: start: 20110208
  5. NORVASC [Concomitant]
     Indication: HYPERTENSION
     Dosage: DAILY DOSE 5 MG
     Route: 048
  6. LOSARTAN POTASSIUM [Concomitant]
     Indication: HYPERTENSION
     Dosage: DAILY DOSE 50 MG
     Route: 048

REACTIONS (2)
  - PROTEINURIA [None]
  - NEPHROTIC SYNDROME [None]
